FAERS Safety Report 7559667-1 (Version None)
Quarter: 2011Q2

REPORT INFORMATION
  Report Type: 
  Country: None (occurrence: None)
  Receive Date: 20110617
  Receipt Date: 20110617
  Transmission Date: 20111010
  Serious: Yes (Disabling, Other)
  Sender: FDA-Public Use
  Company Number: None

PATIENT
  Age: 50 Year
  Sex: Female
  Weight: 55.7924 kg

DRUGS (2)
  1. PROMETHAZINE [Suspect]
     Indication: VOMITING
     Dosage: 25 MG X1 IM
     Route: 030
     Dates: start: 20110615, end: 20110615
  2. PROMETHAZINE [Suspect]
     Indication: NAUSEA
     Dosage: 25 MG X1 IM
     Route: 030
     Dates: start: 20110615, end: 20110615

REACTIONS (2)
  - PAIN [None]
  - MOVEMENT DISORDER [None]
